FAERS Safety Report 23409072 (Version 1)
Quarter: 2024Q1

REPORT INFORMATION
  Report Type: Other
  Country: MX (occurrence: None)
  Receive Date: 20240117
  Receipt Date: 20240117
  Transmission Date: 20240410
  Serious: Yes (Disabling, Other)
  Sender: FDA-Public Use
  Company Number: MX-ROCHE-3491110

PATIENT
  Sex: Female
  Weight: 70 kg

DRUGS (4)
  1. OCREVUS [Suspect]
     Active Substance: OCRELIZUMAB
     Indication: Multiple sclerosis
     Route: 042
     Dates: start: 20181207
  2. ACETAMINOPHEN [Concomitant]
     Active Substance: ACETAMINOPHEN
  3. LORATADINE [Concomitant]
     Active Substance: LORATADINE
  4. METHYLPREDNISOLONE [Concomitant]
     Active Substance: METHYLPREDNISOLONE

REACTIONS (8)
  - Disability [Recovered/Resolved with Sequelae]
  - Paraparesis [Unknown]
  - Demyelination [Unknown]
  - Optic neuritis [Unknown]
  - Cognitive disorder [Unknown]
  - Cerebellar syndrome [Unknown]
  - Dysmetria [Unknown]
  - Ataxia [Unknown]

NARRATIVE: CASE EVENT DATE: 20210101
